FAERS Safety Report 14503738 (Version 1)
Quarter: 2018Q1

REPORT INFORMATION
  Report Type: Spontaneous
  Country: US (occurrence: US)
  Receive Date: 20180208
  Receipt Date: 20180208
  Transmission Date: 20180509
  Serious: Yes (Hospitalization)
  Sender: FDA-Public Use
  Company Number: US-GLAXOSMITHKLINE-US2018020867

PATIENT
  Age: 67 Year
  Sex: Female

DRUGS (10)
  1. TRAZODONE [Concomitant]
     Active Substance: TRAZODONE HYDROCHLORIDE
  2. FENOFIBRATE. [Concomitant]
     Active Substance: FENOFIBRATE
  3. ENALAPRIL [Suspect]
     Active Substance: ENALAPRIL
     Indication: PRODUCT USED FOR UNKNOWN INDICATION
     Dosage: UNK
  4. ENALAPRIL [Concomitant]
     Active Substance: ENALAPRIL
  5. ATORVASTATIN [Concomitant]
     Active Substance: ATORVASTATIN
  6. DISULFIRAM. [Concomitant]
     Active Substance: DISULFIRAM
  7. PANTOPRAZOLE [Concomitant]
     Active Substance: PANTOPRAZOLE
  8. BREO ELLIPTA [Suspect]
     Active Substance: FLUTICASONE FUROATE\VILANTEROL TRIFENATATE
     Indication: ASTHMA
     Dosage: 1 PUFF(S), QD
     Dates: start: 20170914
  9. ALBUTEROL. [Concomitant]
     Active Substance: ALBUTEROL
  10. MONTELUKAST [Concomitant]
     Active Substance: MONTELUKAST SODIUM

REACTIONS (2)
  - Swelling face [Recovering/Resolving]
  - Dyspnoea [Recovering/Resolving]

NARRATIVE: CASE EVENT DATE: 201710
